FAERS Safety Report 10141554 (Version 1)
Quarter: 2014Q2

REPORT INFORMATION
  Report Type: Spontaneous
  Country: US (occurrence: US)
  Receive Date: 20140429
  Receipt Date: 20140429
  Transmission Date: 20141212
  Serious: No
  Sender: FDA-Public Use
  Company Number: US-009507513-1404USA015032

PATIENT
  Age: 7 Year
  Sex: Male

DRUGS (2)
  1. CLARITIN CHEWABLE TABLETS [Suspect]
     Indication: SEASONAL ALLERGY
     Dosage: 5 MG, QD
     Route: 048
     Dates: start: 2013
  2. CLARITIN CHEWABLE TABLETS [Suspect]
     Indication: RHINORRHOEA

REACTIONS (1)
  - Drug effect decreased [Unknown]
